FAERS Safety Report 24359942 (Version 2)
Quarter: 2024Q3

REPORT INFORMATION
  Report Type: Report from Study
  Country: GB (occurrence: GB)
  Receive Date: 20240925
  Receipt Date: 20240928
  Transmission Date: 20241017
  Serious: No
  Sender: ABBVIE
  Company Number: GB-ABBVIE-5933575

PATIENT
  Sex: Female

DRUGS (2)
  1. HUMIRA [Suspect]
     Active Substance: ADALIMUMAB
     Indication: Psoriatic arthropathy
     Dosage: FORM STRENGTH: 40 MILLIGRAM
     Route: 058
  2. METHOTREXATE [Suspect]
     Active Substance: METHOTREXATE
     Indication: Product used for unknown indication
     Route: 065

REACTIONS (3)
  - Skin laceration [Unknown]
  - Accident [Unknown]
  - Malaise [Unknown]
